FAERS Safety Report 12613041 (Version 1)
Quarter: 2016Q3

REPORT INFORMATION
  Report Type: Report from Study
  Country: US (occurrence: US)
  Receive Date: 20160802
  Receipt Date: 20160802
  Transmission Date: 20161109
  Serious: Yes (Other)
  Sender: FDA-Public Use
  Company Number: US-ROCHE-1108943

PATIENT
  Sex: Male
  Weight: 83.2 kg

DRUGS (3)
  1. CISPLATIN. [Suspect]
     Active Substance: CISPLATIN
     Indication: SMALL CELL LUNG CANCER
     Dosage: GIVEN OVER 60-120 MINS ON DAY 1 OF 21 DAY CYCLE
     Route: 042
     Dates: start: 20101215, end: 20110504
  2. ETOPOSIDE. [Suspect]
     Active Substance: ETOPOSIDE
     Indication: SMALL CELL LUNG CANCER
     Dosage: GIVEN OVER 60-120 MINS ON DAYS 1-3 OF A 21 DAY CYCLE
     Route: 042
     Dates: start: 20101215, end: 20110504
  3. VISMODEGIB [Suspect]
     Active Substance: VISMODEGIB
     Indication: SMALL CELL LUNG CANCER
     Dosage: DATE OF LAST DOSE: 15/MAR/2011
     Route: 048
     Dates: start: 20101215, end: 20110504

REACTIONS (6)
  - Weight decreased [Unknown]
  - Constipation [Unknown]
  - Neutrophil count decreased [Unknown]
  - Decreased appetite [Unknown]
  - Nausea [Unknown]
  - Vomiting [Unknown]
